FAERS Safety Report 21343499 (Version 1)
Quarter: 2022Q3

REPORT INFORMATION
  Report Type: Spontaneous
  Country: US (occurrence: US)
  Receive Date: 20220916
  Receipt Date: 20220916
  Transmission Date: 20221027
  Serious: No
  Sender: FDA-Public Use
  Company Number: US-PFIZER INC-202201152031

PATIENT
  Age: 58 Year
  Sex: Female
  Weight: 90.72 kg

DRUGS (1)
  1. ESTRING [Suspect]
     Active Substance: ESTRADIOL
     Indication: Atrophic vulvovaginitis
     Dosage: UNK, EVERY 3 MONTHS
     Route: 067

REACTIONS (2)
  - Drug ineffective [Unknown]
  - Poor quality device used [Unknown]
